FAERS Safety Report 17125145 (Version 1)
Quarter: 2019Q4

REPORT INFORMATION
  Report Type: Spontaneous
  Country: US (occurrence: US)
  Receive Date: 20191206
  Receipt Date: 20191206
  Transmission Date: 20200122
  Serious: No
  Sender: FDA-Public Use
  Company Number: NVSC2019US054476

PATIENT
  Age: 91 Year
  Sex: Female

DRUGS (3)
  1. FUROSEMIDE. [Suspect]
     Active Substance: FUROSEMIDE
     Indication: PRIMARY HYPOPARATHYROIDISM
     Dosage: UNK
     Route: 065
  2. RISEDRONATE [Suspect]
     Active Substance: RISEDRONATE SODIUM
     Indication: PRIMARY HYPOPARATHYROIDISM
     Dosage: UNK
     Route: 065
  3. CINACALCET. [Suspect]
     Active Substance: CINACALCET
     Indication: PRIMARY HYPOPARATHYROIDISM
     Dosage: UNK
     Route: 065

REACTIONS (3)
  - Hyperparathyroidism primary [Unknown]
  - Blood creatinine increased [Unknown]
  - Product use in unapproved indication [Unknown]
